FAERS Safety Report 18661501 (Version 1)
Quarter: 2020Q4

REPORT INFORMATION
  Report Type: Spontaneous
  Country: US (occurrence: US)
  Receive Date: 20201224
  Receipt Date: 20201224
  Transmission Date: 20210114
  Serious: Yes (Other)
  Sender: FDA-Public Use
  Company Number: US-ANAZAOHEALTH CORPORATION-2103470

PATIENT
  Age: 49 Year
  Sex: Female

DRUGS (2)
  1. TESTOSTERONE. [Suspect]
     Active Substance: TESTOSTERONE
     Route: 058
     Dates: start: 20200915
  2. TESTOSTERONE. [Concomitant]
     Active Substance: TESTOSTERONE
     Route: 058
     Dates: start: 20201214

REACTIONS (1)
  - Breast cancer [Unknown]
